FAERS Safety Report 7529526-9 (Version None)
Quarter: 2011Q2

REPORT INFORMATION
  Report Type: 
  Country: None (occurrence: None)
  Receive Date: 20110607
  Receipt Date: 20110606
  Transmission Date: 20111010
  Serious: Yes (Other)
  Sender: FDA-Public Use
  Company Number: JP-PFIZER INC-2011121601

PATIENT
  Age: 36 Year
  Sex: Male

DRUGS (1)
  1. VARENICLINE TARTRATE [Suspect]
     Dosage: UNK
     Dates: start: 20110529, end: 20110606

REACTIONS (3)
  - RASH [None]
  - OCULAR HYPERAEMIA [None]
  - DRUG ERUPTION [None]
